FAERS Safety Report 11791641 (Version 1)
Quarter: 2015Q4

REPORT INFORMATION
  Report Type: Spontaneous
  Country: US (occurrence: US)
  Receive Date: 20151201
  Receipt Date: 20151201
  Transmission Date: 20160305
  Serious: Yes (Death, Hospitalization)
  Sender: FDA-Public Use
  Company Number: US-HORIZON-PRE-0209-2015

PATIENT
  Age: 72 Year
  Sex: Male

DRUGS (4)
  1. TACROLIMUS. [Suspect]
     Active Substance: TACROLIMUS
     Indication: IMMUNOSUPPRESSION
     Dosage: 3.5 MG TWICE DAILY
     Route: 048
  2. VALGANCICLOVIR [Concomitant]
     Active Substance: VALGANCICLOVIR
     Indication: ANTIVIRAL PROPHYLAXIS
     Dosage: 450 MG DAILY
  3. MYCOPHENOLATE MOFETIL. [Suspect]
     Active Substance: MYCOPHENOLATE MOFETIL
     Indication: IMMUNOSUPPRESSION
     Dosage: 500 MG TWICE DAILY, TAPERED OFF OVER 6 WEEK PERIOD
  4. PREDNISONE. [Suspect]
     Active Substance: PREDNISONE
     Indication: IMMUNOSUPPRESSION
     Dosage: 20 MG DAILY, TAPERED OFF OVER 6 WEEK PERIOD

REACTIONS (2)
  - Kaposi^s sarcoma [Fatal]
  - Castleman^s disease [Fatal]
